FAERS Safety Report 10478921 (Version 1)
Quarter: 2014Q3

REPORT INFORMATION
  Report Type: Spontaneous
  Country: IT (occurrence: IT)
  Receive Date: 20140926
  Receipt Date: 20140926
  Transmission Date: 20150326
  Serious: Yes (Other)
  Sender: FDA-Public Use
  Company Number: IT-ACTAVIS-2014-20748

PATIENT
  Age: 35 Year
  Sex: Female
  Weight: 81 kg

DRUGS (4)
  1. CYTARABINE. [Suspect]
     Active Substance: CYTARABINE
     Dosage: 3.2 G, DAILY
     Route: 042
     Dates: start: 20140830
  2. ZAVEDOS [Suspect]
     Active Substance: IDARUBICIN
     Indication: ACUTE LEUKAEMIA
     Dosage: 16 MG, UNK
     Route: 042
     Dates: start: 20140726, end: 20140728
  3. FLUDARABINE [Suspect]
     Active Substance: FLUDARABINE PHOSPHATE
     Indication: ACUTE LEUKAEMIA
     Dosage: 50 MG, UNK
     Route: 042
     Dates: start: 20140726, end: 20140730
  4. CYTARABINE. [Suspect]
     Active Substance: CYTARABINE
     Indication: ACUTE LEUKAEMIA
     Dosage: 3.2 G, UNK
     Route: 042
     Dates: start: 20140726, end: 20140730

REACTIONS (1)
  - Hypertransaminasaemia [Recovering/Resolving]

NARRATIVE: CASE EVENT DATE: 20140820
